FAERS Safety Report 6095375-4 (Version None)
Quarter: 2009Q1

REPORT INFORMATION
  Report Type: 
  Country: None (occurrence: None)
  Receive Date: 20090227
  Receipt Date: 20080319
  Transmission Date: 20090719
  Serious: No
  Sender: FDA-Public Use
  Company Number: A0716440A

PATIENT
  Age: 30 Year
  Sex: Female

DRUGS (2)
  1. LAMICTAL [Suspect]
     Indication: MOOD SWINGS
     Route: 048
  2. ORAL CONTRACEPTIVE [Concomitant]

REACTIONS (1)
  - METRORRHAGIA [None]
